FAERS Safety Report 24658582 (Version 1)
Quarter: 2024Q4

REPORT INFORMATION
  Report Type: Spontaneous
  Country: US (occurrence: None)
  Receive Date: 20241122
  Receipt Date: 20241122
  Transmission Date: 20250115
  Serious: Yes (Other)
  Sender: Public
  Company Number: None

PATIENT
  Age: 45 Year
  Sex: Male

DRUGS (1)
  1. GOCOVRI [Suspect]
     Active Substance: AMANTADINE
     Indication: Parkinson^s disease
     Dosage: 137MG QD ORAL
     Route: 048
     Dates: start: 20200817, end: 20241106

REACTIONS (2)
  - Peripheral swelling [None]
  - Skin discolouration [None]

NARRATIVE: CASE EVENT DATE: 20241122
